FAERS Safety Report 5626735-0 (Version None)
Quarter: 2008Q1

REPORT INFORMATION
  Report Type: 
  Country: None (occurrence: None)
  Receive Date: 20080214
  Receipt Date: 20080205
  Transmission Date: 20080703
  Serious: Yes (Hospitalization)
  Sender: FDA-Public Use
  Company Number: JP-PFIZER INC-2008009250

PATIENT
  Age: 71 Year
  Sex: Female

DRUGS (2)
  1. EPLERENONE [Suspect]
     Route: 048
  2. LASIX [Concomitant]
     Dosage: DAILY DOSE:20MG

REACTIONS (1)
  - BRAIN DEATH [None]
